FAERS Safety Report 19299094 (Version 1)
Quarter: 2021Q2

REPORT INFORMATION
  Report Type: Report from Study
  Country: BR (occurrence: BR)
  Receive Date: 20210524
  Receipt Date: 20210524
  Transmission Date: 20210717
  Serious: Yes (Other)
  Sender: FDA-Public Use
  Company Number: BR-BIOGEN-2021BI01013305

PATIENT
  Sex: Female

DRUGS (1)
  1. TECFIDERA [Suspect]
     Active Substance: DIMETHYL FUMARATE
     Indication: MULTIPLE SCLEROSIS
     Route: 048
     Dates: start: 2019, end: 2020

REACTIONS (3)
  - Multiple sclerosis [Not Recovered/Not Resolved]
  - Aphasia [Not Recovered/Not Resolved]
  - Noninfectious myelitis [Unknown]
